FAERS Safety Report 10390543 (Version 1)
Quarter: 2014Q3

REPORT INFORMATION
  Report Type: Spontaneous
  Country: FR (occurrence: None)
  Receive Date: 20140814
  Receipt Date: 20140814
  Transmission Date: 20150326
  Serious: Yes (Hospitalization)
  Sender: FDA-Public Use
  Company Number: AUR-APL-2014-08469

PATIENT
  Age: 47 Year
  Sex: Female

DRUGS (3)
  1. AMOXICILLIN ARROW (AMOXICILLIN)UNKNOWN [Suspect]
     Active Substance: AMOXICILLIN
     Indication: ERYSIPELAS
     Route: 048
     Dates: start: 20140524, end: 20140529
  2. AUGMENTIN [Suspect]
     Active Substance: AMOXICILLIN\CLAVULANATE POTASSIUM
     Indication: PRODUCT USED FOR UNKNOWN INDICATION
     Dates: start: 20140621, end: 20140623
  3. AMOXICILLIN ARROW (AMOXICILLIN)UNKNOWN [Suspect]
     Active Substance: AMOXICILLIN
     Route: 048
     Dates: start: 20140524, end: 20140529

REACTIONS (7)
  - Erythema [None]
  - Balance disorder [None]
  - Condition aggravated [None]
  - Dysphagia [None]
  - Dysgeusia [None]
  - Lymphoedema [None]
  - Tinnitus [None]

NARRATIVE: CASE EVENT DATE: 201405
